FAERS Safety Report 17587484 (Version 2)
Quarter: 2020Q2

REPORT INFORMATION
  Report Type: Spontaneous
  Country: US (occurrence: US)
  Receive Date: 20200326
  Receipt Date: 20200601
  Transmission Date: 20200713
  Serious: Yes (Other)
  Sender: FDA-Public Use
  Company Number: US-ASTELLAS-2020US010634

PATIENT
  Age: 71 Year
  Sex: Male

DRUGS (3)
  1. ACYCLOVIR [ACICLOVIR] [Concomitant]
     Active Substance: ACYCLOVIR
     Indication: HERPES VIRUS INFECTION
     Dosage: UNK UNK, UNKNOWN FREQ.
     Route: 065
  2. MYRBETRIQ [Suspect]
     Active Substance: MIRABEGRON
     Indication: URINARY INCONTINENCE
     Route: 065
  3. ZYTIGA [Concomitant]
     Active Substance: ABIRATERONE ACETATE
     Indication: PRODUCT USED FOR UNKNOWN INDICATION
     Route: 065

REACTIONS (7)
  - Neuropathy peripheral [Unknown]
  - Urinary incontinence [Unknown]
  - Amnesia [Unknown]
  - Neoplasm malignant [Unknown]
  - Constipation [Unknown]
  - Inability to afford medication [Unknown]
  - Therapeutic product effect incomplete [Unknown]
